FAERS Safety Report 20058576 (Version 1)
Quarter: 2021Q4

REPORT INFORMATION
  Report Type: Spontaneous
  Country: US (occurrence: None)
  Receive Date: 20211111
  Receipt Date: 20211111
  Transmission Date: 20220303
  Serious: Yes (Death)
  Sender: FDA-Public Use
  Company Number: None

PATIENT
  Age: 72 Year
  Sex: Male
  Weight: 105 kg

DRUGS (22)
  1. ACTEMRA [Suspect]
     Active Substance: TOCILIZUMAB
     Indication: COVID-19
     Dosage: FREQUENCY : ONCE;?
     Route: 042
     Dates: start: 20211031, end: 20211031
  2. ACETAMINOPHEN [Concomitant]
     Active Substance: ACETAMINOPHEN
     Dates: start: 20211030, end: 20211107
  3. ACETYLCYSTEINE [Concomitant]
     Active Substance: ACETYLCYSTEINE
     Dates: start: 20211101, end: 20211101
  4. ALBUTEROL [Concomitant]
     Active Substance: ALBUTEROL
     Dates: start: 20211101, end: 20211101
  5. AMIODARONE [Concomitant]
     Active Substance: AMIODARONE
     Dates: start: 20211108, end: 20211109
  6. HEPARIN [Concomitant]
     Active Substance: HEPARIN SODIUM
     Dates: start: 20211105, end: 20211109
  7. VANCOMYCIN [Concomitant]
     Active Substance: VANCOMYCIN
     Dates: start: 20211108, end: 20211108
  8. PIPERACILLIN AND TAZOBACTAM [Concomitant]
     Active Substance: PIPERACILLIN SODIUM\TAZOBACTAM SODIUM
     Dates: start: 20211108, end: 20211109
  9. Dexamethaxone [Concomitant]
     Dates: start: 20211030, end: 20211107
  10. PHENYLEPHRINE [Concomitant]
     Active Substance: PHENYLEPHRINE HYDROCHLORIDE
     Dates: start: 20211108, end: 20211109
  11. Norepinehrine [Concomitant]
     Dates: start: 20211104, end: 20211109
  12. VASOPRESSIN [Concomitant]
     Active Substance: VASOPRESSIN
     Dates: start: 20211108, end: 20211109
  13. FENTANYL [Concomitant]
     Active Substance: FENTANYL
     Dates: start: 20211103, end: 20211109
  14. FAMOTIDINE [Concomitant]
     Active Substance: FAMOTIDINE
     Dates: start: 20211105, end: 20211109
  15. HYDROMORPHONE [Concomitant]
     Active Substance: HYDROMORPHONE
     Dates: start: 20211105, end: 20211109
  16. LORAZEPAM [Concomitant]
     Active Substance: LORAZEPAM
     Dates: start: 20211109, end: 20211109
  17. MORPHINE [Concomitant]
     Active Substance: MORPHINE
     Dates: start: 20211109, end: 20211109
  18. ASPIRIN [Concomitant]
     Active Substance: ASPIRIN
     Dates: start: 20211030, end: 20211109
  19. ENOXAPARIN [Concomitant]
     Active Substance: ENOXAPARIN
     Dates: start: 20211031, end: 20211108
  20. VECURONIUM [Concomitant]
     Active Substance: VECURONIUM BROMIDE
     Dates: start: 20211103, end: 20211106
  21. MIDAZOLAM [Concomitant]
     Active Substance: MIDAZOLAM
     Dates: start: 20211103, end: 20211107
  22. FUROSEMIDE [Concomitant]
     Active Substance: FUROSEMIDE
     Dates: start: 20211031, end: 20211031

REACTIONS (9)
  - Acute respiratory distress syndrome [None]
  - Atrial fibrillation [None]
  - Haemodynamic instability [None]
  - Hypotension [None]
  - Multiple organ dysfunction syndrome [None]
  - Acute kidney injury [None]
  - Respiratory failure [None]
  - Lactic acidosis [None]
  - Metabolic acidosis [None]

NARRATIVE: CASE EVENT DATE: 20211109
